FAERS Safety Report 24429210 (Version 2)
Quarter: 2025Q1

REPORT INFORMATION
  Report Type: Report from Study
  Country: KR (occurrence: KR)
  Receive Date: 20241011
  Receipt Date: 20250219
  Transmission Date: 20250409
  Serious: Yes (Other)
  Sender: JAZZ
  Company Number: KR-BR-LTD-OS-401-008-002

PATIENT
  Age: 58 Year
  Sex: Female
  Weight: 49.7 kg

DRUGS (19)
  1. LURBINECTEDIN [Suspect]
     Active Substance: LURBINECTEDIN
     Indication: Small cell lung cancer
     Dates: start: 20230919
  2. LURBINECTEDIN [Suspect]
     Active Substance: LURBINECTEDIN
     Dosage: 2.6 MILLIGRAM/SQ. METER, Q3W, C2D1
     Route: 042
     Dates: start: 20231028
  3. LURBINECTEDIN [Suspect]
     Active Substance: LURBINECTEDIN
     Dosage: 2.6 MILLIGRAM/SQ. METER, Q3W, C3D1
     Route: 042
     Dates: start: 20231121
  4. LURBINECTEDIN [Suspect]
     Active Substance: LURBINECTEDIN
     Dosage: 2.6 MILLIGRAM/SQ. METER, Q3W, C4D1
     Route: 042
     Dates: start: 20231212
  5. DIETARY SUPPLEMENT\HERBALS\MILK THISTLE [Concomitant]
     Active Substance: MILK THISTLE
     Indication: Liver function test increased
     Dosage: 140 MILLIGRAM, TID
     Route: 048
     Dates: start: 20230914, end: 20230929
  6. URSA FENOL [Concomitant]
     Indication: Liver function test increased
     Dosage: 100 MILLIGRAM, TID
     Route: 048
     Dates: start: 20230914, end: 20230929
  7. GASTER [OMEPRAZOLE] [Concomitant]
     Indication: Prophylaxis
     Dosage: 20 MILLIGRAM, QD
     Route: 042
     Dates: start: 20230919, end: 20230919
  8. ONSERAN [Concomitant]
     Indication: Prophylaxis
     Dosage: 8 MILLIGRAM, QD
     Route: 042
     Dates: start: 20230919, end: 20231212
  9. DEXAMETHASONE [Concomitant]
     Active Substance: DEXAMETHASONE
     Indication: Prophylaxis
     Dosage: 8 MILLIGRAM, QD
     Route: 042
     Dates: start: 20230919, end: 20230919
  10. MORPHINE SULFATE [Concomitant]
     Active Substance: MORPHINE SULFATE
     Indication: Prophylaxis
     Dosage: 30 MILLIGRAM, QD
     Route: 042
     Dates: start: 20230919, end: 20231021
  11. FENTADUR [Concomitant]
     Indication: Prophylaxis
     Dosage: 5.5 MILLIGRAM, QD
     Dates: start: 20230919
  12. KYONGBO CEFTRIAXONE SODIUM [Concomitant]
     Indication: Urinary tract infection
     Dosage: 2 GRAM, QD
     Route: 042
     Dates: start: 20230919, end: 20230922
  13. TRAMADOL HYDROCHLORIDE [Concomitant]
     Active Substance: TRAMADOL HYDROCHLORIDE
     Indication: Prophylaxis
     Route: 042
     Dates: start: 20230921, end: 20231021
  14. POTALAC [Concomitant]
     Indication: Prophylaxis
     Dosage: 20 GRAM, BID
     Route: 048
     Dates: start: 20230921, end: 20230926
  15. PENIRAMIN [Concomitant]
     Indication: Prophylaxis
     Dosage: 4 MILLIGRAM, QD
     Route: 042
     Dates: start: 20230923, end: 20231018
  16. OXYCODONE [Concomitant]
     Active Substance: OXYCODONE
     Indication: Prophylaxis
     Route: 048
     Dates: start: 20230920
  17. TYLENOL [Concomitant]
     Active Substance: ACETAMINOPHEN
     Indication: Prophylaxis
     Dosage: 650 MILLIGRAM, TID
     Route: 048
     Dates: start: 20231017
  18. DULASTIN [Concomitant]
     Indication: Prophylaxis
     Dosage: 0.6 MILLILITER, QD
     Dates: start: 20231122
  19. MAGNESIUM HYDROXIDE [Concomitant]
     Active Substance: MAGNESIUM HYDROXIDE
     Indication: Prophylaxis
     Dosage: 500 MILLIGRAM, TID
     Route: 048
     Dates: start: 20231123

REACTIONS (14)
  - Hypokalaemia [Recovered/Resolved]
  - Pericardial effusion [Recovering/Resolving]
  - Thrombocytopenia [Recovered/Resolved]
  - Thrombocytopenia [Recovered/Resolved]
  - Hypomagnesaemia [Recovered/Resolved]
  - Hypophosphataemia [Recovered/Resolved]
  - Hypoalbuminaemia [Recovered/Resolved]
  - Pleural effusion [Recovering/Resolving]
  - Hypotension [Recovered/Resolved]
  - Nausea [Recovering/Resolving]
  - Pruritus [Recovering/Resolving]
  - Insomnia [Recovering/Resolving]
  - Pollakiuria [Recovering/Resolving]
  - Extravasation [Recovered/Resolved]

NARRATIVE: CASE EVENT DATE: 20230921
